FAERS Safety Report 17133913 (Version 1)
Quarter: 2019Q4

REPORT INFORMATION
  Report Type: Spontaneous
  Country: FR (occurrence: FR)
  Receive Date: 20191210
  Receipt Date: 20191210
  Transmission Date: 20200122
  Serious: Yes (Hospitalization)
  Sender: FDA-Public Use
  Company Number: FR-ACCORD-164134

PATIENT
  Age: 86 Year
  Sex: Female
  Weight: 59 kg

DRUGS (8)
  1. SERESTA [Concomitant]
     Active Substance: OXAZEPAM
     Dosage: STRENGTH 10 MG
     Route: 048
  2. KARDEGIC [Concomitant]
     Active Substance: ASPIRIN DL-LYSINE
     Dosage: STRENGTH 75 MG, POWDER FOR ORAL SOLUTION IN SACHET-DOSE
     Route: 048
  3. RAMIPRIL. [Concomitant]
     Active Substance: RAMIPRIL
     Route: 048
  4. BISOCE [Concomitant]
     Active Substance: BISOPROLOL
     Dosage: STRENGTH 2.5 MG
     Route: 048
  5. BRILIQUE [Concomitant]
     Active Substance: TICAGRELOR
     Dosage: STRENGTH 90 MG
     Route: 048
  6. ATORVASTATIN/ATORVASTATIN CALCIUM [Suspect]
     Active Substance: ATORVASTATIN CALCIUM
     Indication: PROPHYLAXIS
     Route: 048
     Dates: start: 20190919, end: 20191018
  7. LEVOTHYROX [Concomitant]
     Active Substance: LEVOTHYROXINE
     Route: 048
  8. PRETERAX [Concomitant]
     Active Substance: INDAPAMIDE\PERINDOPRIL
     Dosage: STRENGTH 2.5 MG / 0.625 MG
     Route: 048

REACTIONS (3)
  - Acute kidney injury [Recovered/Resolved]
  - Condition aggravated [Recovered/Resolved]
  - Rhabdomyolysis [Recovered/Resolved]

NARRATIVE: CASE EVENT DATE: 20190919
